FAERS Safety Report 10952317 (Version 1)
Quarter: 2015Q1

REPORT INFORMATION
  Report Type: Spontaneous
  Country: US (occurrence: None)
  Receive Date: 20150324
  Receipt Date: 20150324
  Transmission Date: 20150721
  Serious: Yes (Disabling)
  Sender: FDA-Public Use
  Company Number: None

PATIENT
  Age: 21 Year
  Sex: Female
  Weight: 61.24 kg

DRUGS (1)
  1. MIRENA [Suspect]
     Active Substance: LEVONORGESTREL

REACTIONS (20)
  - Abdominal pain lower [None]
  - Secretion discharge [None]
  - Arthralgia [None]
  - Alopecia [None]
  - Depression [None]
  - Discomfort [None]
  - Palpitations [None]
  - Anxiety [None]
  - Nausea [None]
  - Insomnia [None]
  - Hot flush [None]
  - Dizziness [None]
  - Weight decreased [None]
  - Cold sweat [None]
  - Back pain [None]
  - Device dislocation [None]
  - Diarrhoea [None]
  - Decreased appetite [None]
  - Paraesthesia [None]
  - Abdominal pain upper [None]
